FAERS Safety Report 7175395-9 (Version None)
Quarter: 2010Q4

REPORT INFORMATION
  Report Type: 
  Country: None (occurrence: None)
  Receive Date: 20101207
  Receipt Date: 20101122
  Transmission Date: 20110411
  Serious: Yes (Other)
  Sender: FDA-Public Use
  Company Number: 011984

PATIENT
  Age: 7 Year
  Sex: Female

DRUGS (2)
  1. BUSULFEX [Suspect]
     Indication: STEM CELL TRANSPLANT
     Dosage: 0.8 MG/KG, Q6HR, INTRAVENOUS
     Route: 042
  2. CYCLOPHOSPHAMIDE [Concomitant]

REACTIONS (4)
  - DRUG TOXICITY [None]
  - GASTRITIS HAEMORRHAGIC [None]
  - HYPOALBUMINAEMIA [None]
  - VOMITING [None]
